FAERS Safety Report 13389021 (Version 4)
Quarter: 2017Q2

REPORT INFORMATION
  Report Type: Spontaneous
  Country: GB (occurrence: GB)
  Receive Date: 20170330
  Receipt Date: 20170516
  Transmission Date: 20170830
  Serious: Yes (Other)
  Sender: FDA-Public Use
  Company Number: GB-PFIZER INC-2017129812

PATIENT
  Sex: Female

DRUGS (13)
  1. PROLIA [Suspect]
     Active Substance: DENOSUMAB
     Indication: OSTEOPOROSIS
     Dosage: UNK (SECOND INJECTION WAS SUPPOSED TO BE ON 14-FEB-2017 BUT THIS WAS CANCELLED   )
     Route: 065
     Dates: start: 201608
  2. AMLODIPINE BESILATE [Suspect]
     Active Substance: AMLODIPINE BESYLATE
     Indication: HYPERTENSION
     Dosage: 5 MG, UNK
     Route: 065
     Dates: start: 201307
  3. AMLODIPINE BESILATE [Suspect]
     Active Substance: AMLODIPINE BESYLATE
     Indication: MYALGIA
  4. ALENDRONIC ACID [Suspect]
     Active Substance: ALENDRONIC ACID
     Indication: OSTEOPOROSIS
     Dosage: 70 MG, UNK
     Route: 048
     Dates: start: 201402, end: 201608
  5. DOXAZOSIN MESILATE [Suspect]
     Active Substance: DOXAZOSIN MESYLATE
     Indication: HYPERTENSION
     Dosage: 4 MG, UNK (TAKING SINCE 1990^S)
     Route: 048
     Dates: start: 1990, end: 201306
  6. ARIPIPRAZOLE. [Suspect]
     Active Substance: ARIPIPRAZOLE
     Dosage: 2.5 MG, UNK (INCREASED TO 5 MG IN JAN-2017)
     Route: 065
     Dates: start: 201612
  7. BISOPROLOL [Suspect]
     Active Substance: BISOPROLOL
     Indication: HYPERTENSION
     Dosage: 5 MG, UNK (5 MG, UNK (ALSO RECEIVED 1.25 MG SINCE NOV 2016))
     Route: 065
     Dates: start: 201502
  8. ADCAL D3 [Suspect]
     Active Substance: CALCIUM CARBONATE\CHOLECALCIFEROL
     Indication: OSTEOPOROSIS
     Dosage: UNK
     Route: 065
     Dates: start: 201402
  9. LANSOPRAZOLE. [Suspect]
     Active Substance: LANSOPRAZOLE
     Dosage: 30 MG, UNK (ONLY TAKE ON ODD OCCASIONS)
     Route: 065
  10. BISOPROLOL [Suspect]
     Active Substance: BISOPROLOL
     Indication: MYALGIA
     Dosage: 1.25 MG, UNK
     Route: 065
     Dates: start: 201611
  11. AMITRIPTYLINE [Suspect]
     Active Substance: AMITRIPTYLINE
     Dosage: 25 MG, UNK (TAKEN 2 X 50 MGONLY TAKE ON ODD OCCASIONS)
     Route: 065
  12. ARIPIPRAZOLE. [Suspect]
     Active Substance: ARIPIPRAZOLE
     Dosage: 5 MG, UNK
     Route: 065
     Dates: start: 201701
  13. OXPRENOLOL [Suspect]
     Active Substance: OXPRENOLOL
     Indication: HYPERTENSION
     Dosage: 160 MG, UNK
     Route: 065

REACTIONS (17)
  - Rectal prolapse [Unknown]
  - Headache [Unknown]
  - Muscle spasms [Unknown]
  - Dysuria [Unknown]
  - Chest discomfort [Unknown]
  - Pain [Unknown]
  - Influenza like illness [Unknown]
  - Myalgia [Unknown]
  - Dyspnoea [Unknown]
  - Constipation [Unknown]
  - Urinary tract infection [Unknown]
  - Erythema [Unknown]
  - Burning sensation [Unknown]
  - Bone pain [Unknown]
  - Abdominal discomfort [Unknown]
  - Arthralgia [Unknown]
  - Rhinorrhoea [Unknown]
